FAERS Safety Report 16542328 (Version 4)
Quarter: 2020Q1

REPORT INFORMATION
  Report Type: Spontaneous
  Country: LT (occurrence: LT)
  Receive Date: 20190708
  Receipt Date: 20200306
  Transmission Date: 20200409
  Serious: Yes (Hospitalization)
  Sender: FDA-Public Use
  Company Number: PHHY2019LT147288

PATIENT
  Age: 21 Year
  Sex: Female

DRUGS (5)
  1. AMITRIPTYLINE [Suspect]
     Active Substance: AMITRIPTYLINE
     Indication: BLOOD PRESSURE INCREASED
     Dosage: 100 MG, QD
     Route: 065
  2. PREGABALIN. [Suspect]
     Active Substance: PREGABALIN
     Indication: BLOOD PRESSURE INCREASED
     Dosage: 150 MG, QD
     Route: 065
  3. AMITRIPTYLINE [Suspect]
     Active Substance: AMITRIPTYLINE
     Indication: SOMATIC SYMPTOM DISORDER
  4. PREDNISOLONE. [Suspect]
     Active Substance: PREDNISOLONE
     Indication: CHRONIC SINUSITIS
     Dosage: 20 MG, QD
     Route: 065
  5. AMITRIPTYLINE [Suspect]
     Active Substance: AMITRIPTYLINE
     Indication: AUTONOMIC NERVOUS SYSTEM IMBALANCE

REACTIONS (22)
  - Arthropathy [Unknown]
  - Hyperhidrosis [Unknown]
  - Fibromyalgia [Unknown]
  - Pain [Unknown]
  - Peripheral coldness [Unknown]
  - Asthenia [Unknown]
  - Cushing^s syndrome [Not Recovered/Not Resolved]
  - Adrenal suppression [Unknown]
  - Tremor [Unknown]
  - Pyrexia [Not Recovered/Not Resolved]
  - Helplessness [Unknown]
  - Movement disorder [Unknown]
  - Adrenal insufficiency [Unknown]
  - Blood pressure increased [Unknown]
  - Leukocytosis [Unknown]
  - Intentional product misuse [Unknown]
  - Irritable bowel syndrome [Unknown]
  - Hypertension [Unknown]
  - Gait disturbance [Unknown]
  - Somnolence [Unknown]
  - Hypoaesthesia [Unknown]
  - Product use in unapproved indication [Unknown]
